FAERS Safety Report 8308300-X (Version None)
Quarter: 2012Q2

REPORT INFORMATION
  Report Type: 
  Country: None (occurrence: None)
  Receive Date: 20120424
  Receipt Date: 20120417
  Transmission Date: 20120825
  Serious: Yes (Hospitalization, Other)
  Sender: FDA-Public Use
  Company Number: JP-PFIZER INC-2012075224

PATIENT
  Age: 73 Year
  Sex: Female

DRUGS (7)
  1. PREDNISOLONE [Concomitant]
     Dosage: 10 MG, UNK
     Route: 048
     Dates: start: 20091101
  2. ZYVOX [Concomitant]
     Indication: STAPHYLOCOCCAL INFECTION
     Dosage: UNK
     Route: 041
     Dates: start: 20100101
  3. VFEND [Suspect]
     Dosage: 300MG/DAY
     Route: 048
     Dates: start: 20091201, end: 20100201
  4. VFEND [Suspect]
     Dosage: 200MG/DAY
     Route: 048
  5. VFEND [Suspect]
     Indication: CRYPTOCOCCOSIS
     Dosage: 480MG/DAY
     Route: 041
     Dates: start: 20091101, end: 20091101
  6. VFEND [Suspect]
     Dosage: 300MG/DAY
     Route: 041
     Dates: start: 20091101
  7. VFEND [Suspect]
     Dosage: 200MG/DAY
     Route: 048
     Dates: start: 20100301, end: 20101101

REACTIONS (4)
  - DECREASED APPETITE [None]
  - STAPHYLOCOCCAL INFECTION [None]
  - CRYPTOCOCCOSIS [None]
  - HEPATIC ENZYME INCREASED [None]
